FAERS Safety Report 6908451-8 (Version None)
Quarter: 2010Q3

REPORT INFORMATION
  Report Type: 
  Country: None (occurrence: None)
  Receive Date: 20100803
  Receipt Date: 20100722
  Transmission Date: 20110219
  Serious: Yes (Other)
  Sender: FDA-Public Use
  Company Number: DKLU1063898

PATIENT
  Age: 1 Year
  Sex: Male

DRUGS (5)
  1. SABRIL [Suspect]
     Indication: INFANTILE SPASMS
     Dosage: 500 MG MILLIGRAM(S), 2 IN 1 D, ORAL
     Route: 048
     Dates: start: 20100201
  2. TOPAMAX [Concomitant]
  3. DEPAKOTE [Concomitant]
  4. BACLOFEN [Concomitant]
  5. ACTH [Concomitant]

REACTIONS (2)
  - CONVULSION [None]
  - RETINAL DISORDER [None]
